FAERS Safety Report 9625587 (Version 2)
Quarter: 2013Q4

REPORT INFORMATION
  Report Type: Spontaneous
  Country: ES (occurrence: ES)
  Receive Date: 20131016
  Receipt Date: 20131018
  Transmission Date: 20140711
  Serious: Yes (Life-Threatening, Hospitalization, Other)
  Sender: FDA-Public Use
  Company Number: PHHY2013ES114604

PATIENT
  Age: 56 Year
  Sex: Female

DRUGS (1)
  1. GILENYA [Suspect]
     Indication: MULTIPLE SCLEROSIS
     Dosage: 0.5 MG, QD
     Route: 048
     Dates: start: 20130827, end: 20130914

REACTIONS (11)
  - Ischaemic stroke [Not Recovered/Not Resolved]
  - Muscular weakness [Recovering/Resolving]
  - Aphasia [Recovering/Resolving]
  - Dyskinesia [Recovering/Resolving]
  - Dysarthria [Recovering/Resolving]
  - Gait disturbance [Recovering/Resolving]
  - Hypokinesia [Recovering/Resolving]
  - Myocardial infarction [Unknown]
  - Aneurysm [Recovering/Resolving]
  - Carotid artery stenosis [Unknown]
  - Arteriosclerosis [Unknown]
